FAERS Safety Report 25898711 (Version 1)
Quarter: 2025Q4

REPORT INFORMATION
  Report Type: Spontaneous
  Country: US (occurrence: US)
  Receive Date: 20251009
  Receipt Date: 20251009
  Transmission Date: 20260117
  Serious: Yes (Death, Hospitalization, Other)
  Sender: AMGEN
  Company Number: US-AMGEN-USASP2025195677

PATIENT

DRUGS (1)
  1. PREDNISONE [Suspect]
     Active Substance: PREDNISONE
     Indication: Prophylaxis against transplant rejection
     Dosage: UNK
     Route: 065
     Dates: start: 2022

REACTIONS (10)
  - Death [Fatal]
  - Cerebrovascular accident [Unknown]
  - Unevaluable event [Unknown]
  - Vascular pseudoaneurysm [Unknown]
  - Transplant failure [Unknown]
  - Atrial fibrillation [Unknown]
  - Aortic valve incompetence [Unknown]
  - Ventricular tachycardia [Unknown]
  - Pulmonary valve stenosis [Unknown]
  - Atrial flutter [Unknown]
